FAERS Safety Report 16461788 (Version 2)
Quarter: 2019Q2

REPORT INFORMATION
  Report Type: Spontaneous
  Country: US (occurrence: US)
  Receive Date: 20190621
  Receipt Date: 20190628
  Transmission Date: 20190711
  Serious: Yes (Death)
  Sender: FDA-Public Use
  Company Number: US-ASTRAZENECA-2019SE89734

PATIENT
  Sex: Male
  Weight: 68 kg

DRUGS (2)
  1. TUDORZA PRESSAIR [Suspect]
     Active Substance: ACLIDINIUM BROMIDE
     Indication: DYSPNOEA
     Dosage: UNKNOWN
     Route: 055
     Dates: start: 201904
  2. ALBUTEROL. [Concomitant]
     Active Substance: ALBUTEROL
     Indication: ADJUVANT THERAPY
     Dosage: UNKNOWN
     Route: 065

REACTIONS (8)
  - Weight decreased [Unknown]
  - Off label use [Unknown]
  - Dyspnoea [Unknown]
  - Intentional device misuse [Unknown]
  - Drug ineffective [Unknown]
  - Product use in unapproved indication [Unknown]
  - Product dose omission [Unknown]
  - Device issue [Unknown]
